FAERS Safety Report 4326690-X (Version None)
Quarter: 2004Q1

REPORT INFORMATION
  Report Type: 
  Country: None (occurrence: None)
  Receive Date: 20040329
  Receipt Date: 20040329
  Transmission Date: 20041129
  Serious: Yes (Other)
  Sender: FDA-Public Use
  Company Number: None

PATIENT
  Sex: Male
  Weight: 98.8842 kg

DRUGS (1)
  1. ZOLOFT [Suspect]
     Indication: DEPRESSION
     Dosage: 25 MG ONCE DAILY ORAL
     Route: 048

REACTIONS (3)
  - FEELING ABNORMAL [None]
  - INSOMNIA [None]
  - MUSCLE TIGHTNESS [None]
